FAERS Safety Report 5620263-4 (Version None)
Quarter: 2008Q1

REPORT INFORMATION
  Report Type: 
  Country: None (occurrence: None)
  Receive Date: 20080208
  Receipt Date: 20080205
  Transmission Date: 20080703
  Serious: Yes (Other)
  Sender: FDA-Public Use
  Company Number: B0506526A

PATIENT
  Age: 55 Year
  Sex: Female

DRUGS (5)
  1. ZANTAC [Suspect]
     Dosage: 150MG TWICE PER DAY
     Route: 048
     Dates: start: 20080117, end: 20080201
  2. PREDNISOLONE [Concomitant]
     Indication: DEAFNESS NEUROSENSORY
     Dosage: 20MG PER DAY
     Route: 048
     Dates: start: 20080117, end: 20080201
  3. CYANOCOBALAMIN [Concomitant]
     Indication: DEAFNESS NEUROSENSORY
     Dosage: 500MCG THREE TIMES PER DAY
     Route: 048
     Dates: start: 20080117, end: 20080201
  4. ADETPHOS [Concomitant]
     Indication: DEAFNESS NEUROSENSORY
     Dosage: 1G THREE TIMES PER DAY
     Route: 048
     Dates: start: 20080117, end: 20080201
  5. ISOSORBID [Concomitant]
     Indication: DEAFNESS NEUROSENSORY
     Dosage: 30ML THREE TIMES PER DAY
     Route: 048
     Dates: start: 20080117, end: 20080201

REACTIONS (4)
  - HAEMATOMA [None]
  - HAEMORRHAGE SUBCUTANEOUS [None]
  - PLATELET COUNT DECREASED [None]
  - THROMBOCYTOPENIC PURPURA [None]
